FAERS Safety Report 7727418-3 (Version None)
Quarter: 2011Q3

REPORT INFORMATION
  Report Type: 
  Country: None (occurrence: None)
  Receive Date: 20110902
  Receipt Date: 20110830
  Transmission Date: 20111222
  Serious: Yes (Other)
  Sender: FDA-Public Use
  Company Number: US-PFIZER INC-2011192447

PATIENT
  Sex: Female
  Weight: 63.039 kg

DRUGS (10)
  1. CHANTIX [Suspect]
     Dosage: 1 MG, 2X/DAY
     Route: 048
     Dates: start: 20110801, end: 20110801
  2. EFFEXOR XR [Concomitant]
     Indication: DEPRESSION
     Dosage: 300 MG, 1X/DAY
  3. KLONOPIN [Concomitant]
  4. CALCITRIOL [Concomitant]
     Dosage: UNK
  5. TRAZODONE [Concomitant]
     Indication: INSOMNIA
     Dosage: UNK
  6. CHANTIX [Suspect]
     Dosage: 0.5 MG, 2X/DAY
     Route: 048
     Dates: start: 20110801, end: 20110801
  7. CHANTIX [Suspect]
     Dosage: UNK
     Route: 048
     Dates: start: 20110801, end: 20110801
  8. KLONOPIN [Concomitant]
     Indication: NERVOUSNESS
     Dosage: 1 MG, UNK
  9. SYNTHROID [Concomitant]
     Dosage: 100 MG, UNK
  10. CHANTIX [Suspect]
     Indication: SMOKING CESSATION THERAPY
     Dosage: 0.5 MG, 1X/DAY
     Route: 048
     Dates: start: 20110812, end: 20110801

REACTIONS (1)
  - BLOOD CALCIUM DECREASED [None]
